FAERS Safety Report 8542048-1 (Version None)
Quarter: 2012Q3

REPORT INFORMATION
  Report Type: 
  Country: None (occurrence: None)
  Receive Date: 20120726
  Receipt Date: 20110929
  Transmission Date: 20120928
  Serious: No
  Sender: FDA-Public Use
  Company Number: US-ASTRAZENECA-2011SE58701

PATIENT
  Age: 45 Year
  Sex: Female
  Weight: 79.4 kg

DRUGS (2)
  1. PROZAC [Concomitant]
  2. SEROQUEL [Suspect]
     Indication: BIPOLAR I DISORDER
     Route: 048
     Dates: start: 20080101

REACTIONS (1)
  - WALKING AID USER [None]
